FAERS Safety Report 14386273 (Version 2)
Quarter: 2019Q3

REPORT INFORMATION
  Report Type: Spontaneous
  Country: US (occurrence: US)
  Receive Date: 20180115
  Receipt Date: 20190807
  Transmission Date: 20191004
  Serious: Yes (Other)
  Sender: FDA-Public Use
  Company Number: US-SA-2017SA087575

PATIENT
  Age: 43 Year
  Sex: Female
  Weight: 53 kg

DRUGS (11)
  1. PARAPLATIN [Concomitant]
     Active Substance: CARBOPLATIN
     Dosage: UNK
     Route: 065
  2. ANZEMET [Concomitant]
     Active Substance: DOLASETRON MESYLATE
     Dosage: 100 MG, UNK
     Route: 042
  3. TYLENOL [Concomitant]
     Active Substance: ACETAMINOPHEN
     Dosage: 1000 MG, UNK
     Route: 065
  4. PHENERGAN [Concomitant]
     Active Substance: PROMETHAZINE HYDROCHLORIDE
     Dosage: 12.5 MG, UNK
     Route: 042
  5. TAXOTERE [Suspect]
     Active Substance: DOCETAXEL
     Indication: BREAST CANCER STAGE I
     Dosage: 135 MG,Q3W
     Route: 042
     Dates: start: 20081215, end: 20081215
  6. ATIVAN [Concomitant]
     Active Substance: LORAZEPAM
     Dosage: 0.5 UNK, UNK
     Route: 065
  7. TAGAMET [Concomitant]
     Active Substance: CIMETIDINE
     Dosage: 300 MG, UNK
     Route: 042
  8. TAXOTERE [Suspect]
     Active Substance: DOCETAXEL
     Dosage: 135 MG,Q3W
     Route: 042
     Dates: start: 20090331, end: 20090331
  9. HERCEPTIN [Concomitant]
     Active Substance: TRASTUZUMAB
     Dosage: 6 MG/KG, UNK
     Route: 042
  10. NEULASTA [Concomitant]
     Active Substance: PEGFILGRASTIM
     Dosage: 6 MG
     Route: 065
  11. DECADRON [Concomitant]
     Active Substance: DEXAMETHASONE
     Dosage: 20 MG, UNK
     Route: 042

REACTIONS (6)
  - Pain [Unknown]
  - Psychological trauma [Unknown]
  - Alopecia [Not Recovered/Not Resolved]
  - Anxiety [Unknown]
  - Impaired quality of life [Unknown]
  - Emotional distress [Unknown]

NARRATIVE: CASE EVENT DATE: 20090331
